FAERS Safety Report 24233580 (Version 1)
Quarter: 2024Q3

REPORT INFORMATION
  Report Type: Spontaneous
  Country: US (occurrence: US)
  Receive Date: 20240821
  Receipt Date: 20240821
  Transmission Date: 20241016
  Serious: No
  Sender: BAYER
  Company Number: US-BAYER-2024A118764

PATIENT
  Age: 93 Year
  Sex: Male

DRUGS (1)
  1. MIRALAX [Suspect]
     Active Substance: POLYETHYLENE GLYCOL 3350
     Indication: Gastrointestinal disorder
     Dosage: THE HALF OF THE WHITE SECTION IN THE CAP WITH WATER
     Route: 048
     Dates: end: 20240816

REACTIONS (1)
  - Incorrect dose administered [Recovered/Resolved]
